FAERS Safety Report 5371480-2 (Version None)
Quarter: 2007Q2

REPORT INFORMATION
  Report Type: 
  Country: None (occurrence: None)
  Receive Date: 20070622
  Receipt Date: 20070619
  Transmission Date: 20071010
  Serious: Yes (Death)
  Sender: FDA-Public Use
  Company Number: 163-21880-07051599

PATIENT
  Age: 70 Year
  Sex: Female

DRUGS (2)
  1. REVLIMID [Suspect]
     Indication: DISEASE PROGRESSION
     Dosage: 10 MG, OD X 21 DAYS Q 28 DAYS, ORAL
     Route: 048
     Dates: start: 20070115, end: 20070510
  2. REVLIMID [Suspect]
     Indication: MULTIPLE MYELOMA
     Dosage: 10 MG, OD X 21 DAYS Q 28 DAYS, ORAL
     Route: 048
     Dates: start: 20070115, end: 20070510

REACTIONS (3)
  - DISEASE PROGRESSION [None]
  - HYPERVISCOSITY SYNDROME [None]
  - MULTIPLE MYELOMA [None]
